FAERS Safety Report 24191552 (Version 1)
Quarter: 2024Q3

REPORT INFORMATION
  Report Type: Report from Study
  Country: US (occurrence: US)
  Receive Date: 20240808
  Receipt Date: 20240808
  Transmission Date: 20241016
  Serious: Yes (Hospitalization)
  Sender: ACADIA PHARMACEUTICALS
  Company Number: US-ACADIA PHARMACEUTICALS INC.-ACA-2024-PIM-003640

PATIENT
  Sex: Male

DRUGS (24)
  1. NUPLAZID [Suspect]
     Active Substance: PIMAVANSERIN TARTRATE
     Indication: Parkinson^s disease psychosis
     Dosage: 34 MILLIGRAM, QD
     Route: 048
     Dates: start: 20240626
  2. NUPLAZID [Suspect]
     Active Substance: PIMAVANSERIN TARTRATE
     Indication: Parkinson^s disease
  3. LITHIUM [Concomitant]
     Active Substance: LITHIUM
  4. CLONAZEPAM [Concomitant]
     Active Substance: CLONAZEPAM
  5. ATORVASTATIN [Concomitant]
     Active Substance: ATORVASTATIN
  6. CHLORTHALIDONE [Concomitant]
     Active Substance: CHLORTHALIDONE
  7. PRAMIPEXOLE DIHYDROCHLORIDE [Concomitant]
     Active Substance: PRAMIPEXOLE DIHYDROCHLORIDE
  8. MODAFINIL [Concomitant]
     Active Substance: MODAFINIL
  9. SUMATRIPTAN [Concomitant]
     Active Substance: SUMATRIPTAN
  10. METHYLPHENIDATE [Concomitant]
     Active Substance: METHYLPHENIDATE
  11. LINZESS [Concomitant]
     Active Substance: LINACLOTIDE
  12. VENLAFAXINE [Concomitant]
     Active Substance: VENLAFAXINE HYDROCHLORIDE
  13. DICYCLOMINE [Concomitant]
     Active Substance: DICYCLOMINE HYDROCHLORIDE
  14. PREGABALIN [Concomitant]
     Active Substance: PREGABALIN
  15. HYDROXYZINE [Concomitant]
     Active Substance: HYDROXYZINE HYDROCHLORIDE
  16. BIFIDOBACTERIUM ANIMALIS LACTIS [Concomitant]
     Active Substance: BIFIDOBACTERIUM ANIMALIS LACTIS
  17. MAGNESIUM [Concomitant]
     Active Substance: MAGNESIUM
  18. VITAMIN C [Concomitant]
     Active Substance: ASCORBIC ACID
  19. NOURIANZ [Concomitant]
     Active Substance: ISTRADEFYLLINE
  20. OMEPRAZOLE [Concomitant]
     Active Substance: OMEPRAZOLE
  21. ONDANSETRON [Concomitant]
     Active Substance: ONDANSETRON
  22. RYTARY [Concomitant]
     Active Substance: CARBIDOPA\LEVODOPA
  23. CARVEDILOL [Concomitant]
     Active Substance: CARVEDILOL
  24. MULTIVITAMIN [ASCORBIC ACID;CALCIUM PANTOTHENATE;COLECALCIFEROL;CYANOC [Concomitant]

REACTIONS (1)
  - Hallucination [Not Recovered/Not Resolved]
